FAERS Safety Report 8328028-X (Version None)
Quarter: 2012Q2

REPORT INFORMATION
  Report Type: 
  Country: None (occurrence: None)
  Receive Date: 20120430
  Receipt Date: 20120418
  Transmission Date: 20120825
  Serious: Yes (Death)
  Sender: FDA-Public Use
  Company Number: ADR-2012-00654

PATIENT
  Age: 58 Year
  Sex: Male

DRUGS (1)
  1. BACLOFEN [Suspect]
     Indication: SPINAL CORD DISORDER

REACTIONS (4)
  - SUDDEN DEATH [None]
  - ASPHYXIA [None]
  - VOMITING [None]
  - PALLOR [None]
